FAERS Safety Report 23821735 (Version 5)
Quarter: 2025Q4

REPORT INFORMATION
  Report Type: Report from Study
  Country: JP (occurrence: JP)
  Receive Date: 20240506
  Receipt Date: 20251121
  Transmission Date: 20260117
  Serious: Yes (Hospitalization)
  Sender: EISAI
  Company Number: JP-Eisai-202401231_LEN-EC_P_1

PATIENT
  Age: 75 Year
  Sex: Female
  Weight: 40 kg

DRUGS (6)
  1. LENVIMA [Suspect]
     Active Substance: LENVATINIB
     Indication: Endometrial cancer recurrent
     Route: 048
     Dates: start: 20230823, end: 20230905
  2. KEYTRUDA [Concomitant]
     Active Substance: PEMBROLIZUMAB
     Indication: Endometrial cancer recurrent
     Dosage: UNKNOWN FREQUENCY
     Route: 042
     Dates: start: 20230823, end: 20231207
  3. KEYTRUDA [Concomitant]
     Active Substance: PEMBROLIZUMAB
     Dosage: KEYTRUDA WAS SUSPENDED DUE TO A CHANGE IN THE VISIT DATE DUE TO PATIENT^S CONVENIENCE. FREQ UNK
     Route: 042
     Dates: start: 20231218, end: 20240108
  4. KEYTRUDA [Concomitant]
     Active Substance: PEMBROLIZUMAB
     Dosage: KEYTRUDA WAS SUSPENDED DUE TO A CHANGE IN THE VISIT DATE DUE TO HER CONVENIENCE. UNKNOWN FREQUENCY
     Route: 042
     Dates: start: 20240115, end: 20240429
  5. KEYTRUDA [Concomitant]
     Active Substance: PEMBROLIZUMAB
     Dosage: KEYTRUDA WAS SUSPENDED DUE TO A CHANGE IN THE VISIT DATE DUE TO HER CONVENIENCE. FREQUENCY UNKNOWN
     Route: 042
     Dates: start: 20240508, end: 20240918
  6. KEYTRUDA [Concomitant]
     Active Substance: PEMBROLIZUMAB
     Dosage: FREQUENCY UNKNOWN
     Route: 042

REACTIONS (2)
  - Enterocolitis [Recovering/Resolving]
  - Diarrhoea [Recovered/Resolved]

NARRATIVE: CASE EVENT DATE: 20230903
